FAERS Safety Report 4868698-1 (Version None)
Quarter: 2005Q4

REPORT INFORMATION
  Report Type: 
  Country: None (occurrence: None)
  Receive Date: 20051223
  Receipt Date: 20051216
  Transmission Date: 20060501
  Serious: Yes (Other)
  Sender: FDA-Public Use
  Company Number: 2005169306

PATIENT
  Age: 51 Year
  Sex: Male
  Weight: 86.1834 kg

DRUGS (2)
  1. LIPITOR [Suspect]
     Indication: BLOOD CHOLESTEROL INCREASED
     Dosage: 10 MG (10 MG, 1 IN 1 D)
     Dates: start: 20010101
  2. PROTONIX [Concomitant]

REACTIONS (4)
  - ANORECTAL DISORDER [None]
  - FATIGUE [None]
  - RASH [None]
  - TOOTH EXTRACTION [None]
